FAERS Safety Report 5198936-X (Version None)
Quarter: 2007Q1

REPORT INFORMATION
  Report Type: 
  Country: None (occurrence: None)
  Receive Date: 20070104
  Receipt Date: 20061221
  Transmission Date: 20070707
  Serious: Yes (Hospitalization)
  Sender: FDA-Public Use
  Company Number: NO-PFIZER INC-2006155820

PATIENT
  Sex: Female

DRUGS (3)
  1. LYRICA [Suspect]
     Indication: NEURALGIA
     Route: 048
     Dates: start: 20061020, end: 20061108
  2. ZOLOFT [Concomitant]
     Indication: DEPRESSION
     Route: 048
  3. VITAMIN B-12 [Concomitant]
     Dosage: FREQ:ONCE WEEKLY
     Route: 030

REACTIONS (2)
  - CONVULSION [None]
  - SYNCOPE [None]
